FAERS Safety Report 18895940 (Version 1)
Quarter: 2021Q1

REPORT INFORMATION
  Report Type: Spontaneous
  Country: US (occurrence: US)
  Receive Date: 20210216
  Receipt Date: 20210216
  Transmission Date: 20210420
  Serious: Yes (Other)
  Sender: FDA-Public Use
  Company Number: US-ROCHE-2769157

PATIENT
  Age: 99 Year
  Sex: Female

DRUGS (1)
  1. LUCENTIS [Suspect]
     Active Substance: RANIBIZUMAB
     Indication: PRODUCT USED FOR UNKNOWN INDICATION
     Dosage: SHOT IN EYE
     Route: 031

REACTIONS (2)
  - Angina pectoris [Unknown]
  - Pain [Unknown]

NARRATIVE: CASE EVENT DATE: 202102
